FAERS Safety Report 22231605 (Version 1)
Quarter: 2023Q2

REPORT INFORMATION
  Report Type: Spontaneous
  Country: US (occurrence: US)
  Receive Date: 20230420
  Receipt Date: 20230420
  Transmission Date: 20230722
  Serious: No
  Sender: FDA-Public Use
  Company Number: US-drreddys-LIT/USA/23/0162274

PATIENT
  Age: 44 Year
  Sex: Male

DRUGS (16)
  1. DEXAMETHASONE [Suspect]
     Active Substance: DEXAMETHASONE
     Indication: Trigeminal neuralgia
  2. DEXAMETHASONE [Suspect]
     Active Substance: DEXAMETHASONE
     Indication: Glossopharyngeal neuralgia
  3. DEXAMETHASONE [Suspect]
     Active Substance: DEXAMETHASONE
     Indication: Headache
  4. DIVALPROEX SODIUM [Suspect]
     Active Substance: DIVALPROEX SODIUM
     Indication: Trigeminal neuralgia
  5. DIVALPROEX SODIUM [Suspect]
     Active Substance: DIVALPROEX SODIUM
     Indication: Glossopharyngeal neuralgia
  6. DIVALPROEX SODIUM [Suspect]
     Active Substance: DIVALPROEX SODIUM
     Indication: Headache
  7. INDOMETHACIN [Suspect]
     Active Substance: INDOMETHACIN
     Indication: Headache
  8. OXYCODONE [Suspect]
     Active Substance: OXYCODONE
     Indication: Headache
  9. OXYCODONE [Suspect]
     Active Substance: OXYCODONE
     Indication: Trigeminal neuralgia
  10. OXYCODONE [Suspect]
     Active Substance: OXYCODONE
     Indication: Glossopharyngeal neuralgia
  11. HYDROMORPHONE [Suspect]
     Active Substance: HYDROMORPHONE
     Indication: Headache
  12. HYDROMORPHONE [Suspect]
     Active Substance: HYDROMORPHONE
     Indication: Trigeminal neuralgia
  13. HYDROMORPHONE [Suspect]
     Active Substance: HYDROMORPHONE
     Indication: Glossopharyngeal neuralgia
  14. BACLOFEN [Suspect]
     Active Substance: BACLOFEN
     Indication: Headache
  15. BACLOFEN [Suspect]
     Active Substance: BACLOFEN
     Indication: Trigeminal neuralgia
  16. BACLOFEN [Suspect]
     Active Substance: BACLOFEN
     Indication: Glossopharyngeal neuralgia

REACTIONS (3)
  - Peripheral sensorimotor neuropathy [Recovered/Resolved]
  - Hereditary motor and sensory neuropathy [Recovered/Resolved]
  - Drug ineffective for unapproved indication [Unknown]
